FAERS Safety Report 8230452-0 (Version None)
Quarter: 2012Q1

REPORT INFORMATION
  Report Type: 
  Country: None (occurrence: None)
  Receive Date: 20120323
  Receipt Date: 20120313
  Transmission Date: 20120608
  Serious: Yes (Hospitalization)
  Sender: FDA-Public Use
  Company Number: US-BAYER-2011-123161

PATIENT
  Age: 33 Year
  Sex: Female
  Weight: 94.785 kg

DRUGS (3)
  1. NSAID'S [Concomitant]
     Dosage: UNK
     Dates: start: 20010101, end: 20110101
  2. ALBUTEROL [Concomitant]
     Dosage: UNK
     Dates: start: 20010101, end: 20110101
  3. YAZ [Suspect]
     Indication: PREMENSTRUAL SYNDROME
     Dosage: UNK
     Dates: start: 20100210, end: 20110110

REACTIONS (4)
  - PULMONARY EMBOLISM [None]
  - PAIN [None]
  - DEEP VEIN THROMBOSIS [None]
  - INJURY [None]
